FAERS Safety Report 24846891 (Version 1)
Quarter: 2025Q1

REPORT INFORMATION
  Report Type: Report from Study
  Country: US (occurrence: US)
  Receive Date: 20250115
  Receipt Date: 20250115
  Transmission Date: 20250409
  Serious: Yes (Other)
  Sender: ABBVIE
  Company Number: US-ABBVIE-6081180

PATIENT
  Age: 89 Year
  Sex: Female

DRUGS (1)
  1. RESTASIS [Suspect]
     Active Substance: CYCLOSPORINE
     Indication: Product used for unknown indication
     Dosage: DOSAGE: 0.5 MG/ML ONE DROP IN EACH EYE
     Route: 047

REACTIONS (1)
  - Gallbladder operation [Unknown]
